FAERS Safety Report 7721848-1 (Version None)
Quarter: 2011Q3

REPORT INFORMATION
  Report Type: 
  Country: None (occurrence: None)
  Receive Date: 20110831
  Receipt Date: 20110830
  Transmission Date: 20111222
  Serious: Yes (Hospitalization, Other)
  Sender: FDA-Public Use
  Company Number: US-BRISTOL-MYERS SQUIBB COMPANY-15948623

PATIENT
  Age: 55 Year
  Sex: Female
  Weight: 68 kg

DRUGS (2)
  1. CARBOPLATIN [Suspect]
     Indication: NON-SMALL CELL LUNG CANCER
     Dosage: LAST ADMIN: 15JUL11. 2 COURSES, LAST ADMINISTERED DOSE ON 11AUG2011 588MG (3RD COURSE).
     Dates: start: 20110504
  2. TAXOL [Suspect]
     Indication: NON-SMALL CELL LUNG CANCER
     Dosage: LAST ADMIN: 15JUL11. 2 COURSES,LAST ADMINISTERED DOSE ON 11AUG2011 324MG (3RD COURSE).
     Dates: start: 20110504

REACTIONS (3)
  - OESOPHAGITIS [None]
  - DYSPHAGIA [None]
  - NEUTROPHIL COUNT DECREASED [None]
